FAERS Safety Report 21437107 (Version 5)
Quarter: 2022Q4

REPORT INFORMATION
  Report Type: Spontaneous
  Country: US (occurrence: US)
  Receive Date: 20221010
  Receipt Date: 20221128
  Transmission Date: 20230113
  Serious: Yes (Hospitalization)
  Sender: FDA-Public Use
  Company Number: US-KARYOPHARM THERAPEUTICS, INC.-2022KPT001174

PATIENT

DRUGS (9)
  1. XPOVIO [Suspect]
     Active Substance: SELINEXOR
     Indication: Plasma cell myeloma
     Dosage: 80 MG, WEEKLY FOR THREE WEEKS OF A 28-DAY CYCLE
     Route: 048
     Dates: start: 20220930
  2. DEXAMETHASONE [Concomitant]
     Active Substance: DEXAMETHASONE
  3. GABAPENTIN [Concomitant]
     Active Substance: GABAPENTIN
  4. METOPROLOL [Concomitant]
     Active Substance: METOPROLOL
  5. OXYCODONE [Concomitant]
     Active Substance: OXYCODONE
  6. VELCADE [Concomitant]
     Active Substance: BORTEZOMIB
  7. VALACYCLOVIR HYDROCHLORIDE [Concomitant]
     Active Substance: VALACYCLOVIR HYDROCHLORIDE
  8. XANAX [Concomitant]
     Active Substance: ALPRAZOLAM
  9. ONDANSETRON [Concomitant]
     Active Substance: ONDANSETRON

REACTIONS (4)
  - Rhinovirus infection [Recovering/Resolving]
  - Hyponatraemia [Recovering/Resolving]
  - Pulmonary embolism [Unknown]
  - Peripheral swelling [Recovering/Resolving]

NARRATIVE: CASE EVENT DATE: 20221002
